FAERS Safety Report 4439171-X (Version None)
Quarter: 2004Q3

REPORT INFORMATION
  Report Type: 
  Country: None (occurrence: None)
  Receive Date: 20040831
  Receipt Date: 20040810
  Transmission Date: 20050211
  Serious: Yes (Hospitalization)
  Sender: FDA-Public Use
  Company Number: CIO04018402

PATIENT
  Age: 51 Year
  Sex: Female
  Weight: 79.4 kg

DRUGS (2)
  1. METAMUCIL-2 [Suspect]
     Dosage: 1 TBSP, 1/DAY FOR 724 DAYS, ORAL
     Route: 048
     Dates: start: 20020810, end: 20040806
  2. XANAX [Concomitant]

REACTIONS (9)
  - AGITATION [None]
  - ANGER [None]
  - CHILLS [None]
  - EMOTIONAL DISTRESS [None]
  - FEELING COLD [None]
  - HYPOAESTHESIA [None]
  - PERIPHERAL COLDNESS [None]
  - RESTLESSNESS [None]
  - TACHYCARDIA [None]
